FAERS Safety Report 15731443 (Version 1)
Quarter: 2018Q4

REPORT INFORMATION
  Report Type: Report from Study
  Country: ES (occurrence: ES)
  Receive Date: 20181217
  Receipt Date: 20181217
  Transmission Date: 20190205
  Serious: Yes (Other)
  Sender: FDA-Public Use
  Company Number: ES-JNJFOC-20181205282

PATIENT

DRUGS (1)
  1. RISPERIDONE. [Suspect]
     Active Substance: RISPERIDONE
     Indication: PSYCHOTIC DISORDER
     Route: 030

REACTIONS (6)
  - Blood glucose abnormal [Unknown]
  - Lipids abnormal [Unknown]
  - Growth hormone deficiency [Unknown]
  - Body mass index increased [Unknown]
  - Hyperprolactinaemia [Unknown]
  - Disease risk factor [Unknown]
